FAERS Safety Report 9669309 (Version 2)
Quarter: 2013Q4

REPORT INFORMATION
  Report Type: Spontaneous
  Country: CH (occurrence: CH)
  Receive Date: 20131105
  Receipt Date: 20131105
  Transmission Date: 20140711
  Serious: Yes (Other)
  Sender: FDA-Public Use
  Company Number: CH-PFIZER INC-2013253908

PATIENT
  Sex: Female

DRUGS (1)
  1. CRIZOTINIB [Suspect]
     Indication: NEOPLASM MALIGNANT

REACTIONS (3)
  - Toxicity to various agents [Unknown]
  - Disease progression [Unknown]
  - Neoplasm malignant [Unknown]
